FAERS Safety Report 8007614-0 (Version None)
Quarter: 2011Q4

REPORT INFORMATION
  Report Type: 
  Country: None (occurrence: None)
  Receive Date: 20111221
  Receipt Date: 20110404
  Transmission Date: 20120403
  Serious: No
  Sender: FDA-Public Use
  Company Number: AEUSA201100079

PATIENT
  Age: 8 Day
  Sex: Female

DRUGS (1)
  1. HYPERHEP B [Suspect]
     Indication: ANTIVIRAL PROPHYLAXIS
     Dosage: 0.5 ML; 1X; IM
     Route: 030
     Dates: start: 20110331, end: 20110331

REACTIONS (1)
  - EXPIRED DRUG ADMINISTERED [None]
